FAERS Safety Report 19017665 (Version 2)
Quarter: 2021Q2

REPORT INFORMATION
  Report Type: Report from Study
  Country: US (occurrence: US)
  Receive Date: 20210317
  Receipt Date: 20210408
  Transmission Date: 20210717
  Serious: Yes (Death, Other)
  Sender: FDA-Public Use
  Company Number: US-PFIZER INC-2021252752

PATIENT
  Age: 17 Year
  Sex: Female

DRUGS (2)
  1. PENTOSTATIN. [Suspect]
     Active Substance: PENTOSTATIN
     Dosage: 0.5 MG/KG, DAILY, TREATMENT DAYS 4,5
  2. PENTOSTATIN. [Suspect]
     Active Substance: PENTOSTATIN
     Indication: ACUTE LYMPHOCYTIC LEUKAEMIA
     Dosage: 1 MG/KG, DAILY, TREATMENT DAYS 1?3

REACTIONS (1)
  - Pulmonary oedema [Fatal]
